FAERS Safety Report 18777482 (Version 19)
Quarter: 2025Q1

REPORT INFORMATION
  Report Type: Report from Study
  Country: US (occurrence: US)
  Receive Date: 20210123
  Receipt Date: 20250326
  Transmission Date: 20250409
  Serious: Yes (Hospitalization, Other)
  Sender: TAKEDA
  Company Number: US-TAKEDA-2021TUS003243

PATIENT
  Sex: Female
  Weight: 106 kg

DRUGS (36)
  1. HUMAN IMMUNOGLOBULIN G [Suspect]
     Active Substance: HUMAN IMMUNOGLOBULIN G
     Indication: Immunodeficiency common variable
     Dosage: 25 GRAM, 1/WEEK
     Dates: start: 20171101
  2. HUMAN IMMUNOGLOBULIN G [Suspect]
     Active Substance: HUMAN IMMUNOGLOBULIN G
     Indication: Primary immunodeficiency syndrome
     Dosage: 22 GRAM, 1/WEEK
     Dates: start: 20171108
  3. PREDNISONE [Suspect]
     Active Substance: PREDNISONE
     Indication: Product used for unknown indication
  4. METOPROLOL [Suspect]
     Active Substance: METOPROLOL
     Indication: Product used for unknown indication
  5. DIPHENHYDRAMINE [Concomitant]
     Active Substance: DIPHENHYDRAMINE
  6. FUROSEMIDE [Concomitant]
     Active Substance: FUROSEMIDE
  7. ELIQUIS [Concomitant]
     Active Substance: APIXABAN
  8. COENZYME Q10 [Concomitant]
     Active Substance: DIETARY SUPPLEMENT\UBIDECARENONE
  9. EPINEPHRINE [Concomitant]
     Active Substance: EPINEPHRINE
  10. PROTONIX [Concomitant]
     Active Substance: PANTOPRAZOLE SODIUM
  11. MAGNESIUM [Concomitant]
     Active Substance: MAGNESIUM
  12. ZYRTEC [Concomitant]
     Active Substance: CETIRIZINE HYDROCHLORIDE
  13. KLOR-CON M20 [Concomitant]
     Active Substance: POTASSIUM CHLORIDE
  14. IRON [Concomitant]
     Active Substance: IRON
  15. ACETAMINOPHEN [Concomitant]
     Active Substance: ACETAMINOPHEN
  16. AMOXICILLIN [Concomitant]
     Active Substance: AMOXICILLIN
  17. HYDROCORTISONE [Concomitant]
     Active Substance: HYDROCORTISONE
  18. SINGULAIR [Concomitant]
     Active Substance: MONTELUKAST SODIUM
  19. LEXAPRO [Concomitant]
     Active Substance: ESCITALOPRAM OXALATE
  20. VITAMIN C [Concomitant]
     Active Substance: ASCORBIC ACID
  21. VITAMIN D3 [Concomitant]
     Active Substance: CHOLECALCIFEROL
  22. VITAMIN E [Concomitant]
     Active Substance: .ALPHA.-TOCOPHEROL
  23. XIIDRA [Concomitant]
     Active Substance: LIFITEGRAST
  24. METHOTREXATE [Concomitant]
     Active Substance: METHOTREXATE
  25. FOLIC ACID [Concomitant]
     Active Substance: FOLIC ACID
  26. ZOLPIDEM [Concomitant]
     Active Substance: ZOLPIDEM TARTRATE
  27. METAXALL [Concomitant]
     Active Substance: METAXALONE
  28. KLOR-CON [Concomitant]
     Active Substance: POTASSIUM CHLORIDE
  29. Lmx [Concomitant]
  30. DIPHENHYDRAMINE HYDROCHLORIDE [Concomitant]
     Active Substance: DIPHENHYDRAMINE HYDROCHLORIDE
  31. TRAMADOL HCL [Concomitant]
     Active Substance: TRAMADOL HYDROCHLORIDE
  32. PROPRANOLOL HYDROCHLORIDE [Concomitant]
     Active Substance: PROPRANOLOL HYDROCHLORIDE
  33. CYANOCOBALAMIN [Concomitant]
     Active Substance: CYANOCOBALAMIN
  34. LYRICA [Concomitant]
     Active Substance: PREGABALIN
  35. MAGNESIUM OXIDE [Concomitant]
     Active Substance: MAGNESIUM OXIDE
  36. KEPPRA [Concomitant]
     Active Substance: LEVETIRACETAM

REACTIONS (20)
  - Bronchitis [Unknown]
  - Wound infection [Unknown]
  - Kidney infection [Unknown]
  - Cystitis [Unknown]
  - Lower respiratory tract infection [Unknown]
  - Atrial fibrillation [Unknown]
  - Pneumonia aspiration [Unknown]
  - Post procedural infection [Unknown]
  - Atrial flutter [Unknown]
  - Sinusitis [Unknown]
  - Localised infection [Unknown]
  - Drug hypersensitivity [Unknown]
  - Injection site irritation [Unknown]
  - Illness [Unknown]
  - Vitamin B complex deficiency [Unknown]
  - Inappropriate schedule of product administration [Unknown]
  - Postoperative wound infection [Unknown]
  - Weight increased [Unknown]
  - Swelling [Unknown]
  - Product dose omission issue [Unknown]
